FAERS Safety Report 6111219-6 (Version None)
Quarter: 2009Q1

REPORT INFORMATION
  Report Type: 
  Country: None (occurrence: None)
  Receive Date: 20090309
  Receipt Date: 20090223
  Transmission Date: 20090719
  Serious: Yes (Other)
  Sender: FDA-Public Use
  Company Number: 2009S1003077

PATIENT
  Age: 38 Year
  Sex: Female

DRUGS (2)
  1. LAMOTRIGINE [Suspect]
     Indication: DEPRESSION
  2. LITHIUM (LITHIUM) [Concomitant]

REACTIONS (1)
  - SUICIDAL IDEATION [None]
